FAERS Safety Report 5271540-0 (Version None)
Quarter: 2007Q1

REPORT INFORMATION
  Report Type: 
  Country: None (occurrence: None)
  Receive Date: 20070316
  Receipt Date: 20070228
  Transmission Date: 20070707
  Serious: Yes (Hospitalization)
  Sender: FDA-Public Use
  Company Number: US-1161765

PATIENT
  Age: 13 Year
  Sex: Male
  Weight: 55.7924 kg

DRUGS (2)
  1. SYSTANE FREE LIQUID GEL [Suspect]
     Indication: DRUG THERAPY
     Dosage: 4 GTT PRN OPHTHALMIC
     Route: 047
     Dates: start: 20060822, end: 20070227
  2. SINGULAIR [Concomitant]

REACTIONS (5)
  - ABDOMINAL PAIN UPPER [None]
  - DIABETIC KETOACIDOSIS [None]
  - EYE DISORDER [None]
  - SCLERAL DISORDER [None]
  - THIRST [None]
